FAERS Safety Report 5714523-6 (Version None)
Quarter: 2008Q2

REPORT INFORMATION
  Report Type: 
  Country: None (occurrence: None)
  Receive Date: 20080421
  Receipt Date: 20080407
  Transmission Date: 20081010
  Serious: Yes (Death, Hospitalization)
  Sender: FDA-Public Use
  Company Number: 2008AL002130

PATIENT
  Age: 30 Year
  Sex: Female

DRUGS (4)
  1. SULFATRIM PEDIATRIC [Suspect]
     Indication: ANTIFUNGAL PROPHYLAXIS
     Dosage: QOD
  2. SULFATRIM PEDIATRIC [Suspect]
     Indication: GLIOBLASTOMA MULTIFORME
     Dosage: QOD
  3. PHENYTOIN [Concomitant]
  4. TEMOZOLOMIDE [Concomitant]

REACTIONS (5)
  - APLASTIC ANAEMIA [None]
  - BONE MARROW FAILURE [None]
  - GENERAL PHYSICAL HEALTH DETERIORATION [None]
  - GINGIVAL BLEEDING [None]
  - SEPSIS [None]
